FAERS Safety Report 5041755-5 (Version None)
Quarter: 2006Q2

REPORT INFORMATION
  Report Type: 
  Country: None (occurrence: None)
  Receive Date: 20060630
  Receipt Date: 20060619
  Transmission Date: 20061013
  Serious: Yes (Death)
  Sender: FDA-Public Use
  Company Number: 2006053476

PATIENT
  Age: 73 Year
  Sex: Male

DRUGS (2)
  1. BEXTRA [Suspect]
     Dosage: (20 MG)
  2. CELEBREX [Suspect]
     Dosage: (100 MG)

REACTIONS (6)
  - CARDIAC DISORDER [None]
  - CARDIAC FAILURE [None]
  - INJURY [None]
  - MYOCARDIAL INFARCTION [None]
  - OXYGEN SATURATION DECREASED [None]
  - PHARMACEUTICAL PRODUCT COMPLAINT [None]
